FAERS Safety Report 4975524-9 (Version None)
Quarter: 2006Q2

REPORT INFORMATION
  Report Type: 
  Country: None (occurrence: None)
  Receive Date: 20060417
  Receipt Date: 20060417
  Transmission Date: 20061013
  Serious: No
  Sender: FDA-Public Use
  Company Number: None

PATIENT
  Age: 48 Year
  Sex: Female

DRUGS (10)
  1. LANTUS [Suspect]
     Indication: DIABETES MELLITUS
     Dosage: INJECT SUBCUTANEOUSLY 62 UNITS DAILY
     Route: 058
     Dates: start: 20060403
  2. CLONAZEPAM [Concomitant]
  3. HUMALOG [Concomitant]
  4. ACYCLOVIR [Concomitant]
  5. LEVOXYL [Concomitant]
  6. ALPRAZOLAM [Concomitant]
  7. DILTIAZEM [Concomitant]
  8. METFORMIN [Concomitant]
  9. LEXAPRO [Concomitant]
  10. LIPITOR [Concomitant]

REACTIONS (2)
  - DIABETES MELLITUS INADEQUATE CONTROL [None]
  - PHARMACEUTICAL PRODUCT COMPLAINT [None]
